FAERS Safety Report 13964437 (Version 2)
Quarter: 2017Q3

REPORT INFORMATION
  Report Type: Spontaneous
  Country: DE (occurrence: DE)
  Receive Date: 20170913
  Receipt Date: 20170921
  Transmission Date: 20171128
  Serious: Yes (Other)
  Sender: FDA-Public Use
  Company Number: DE-PFIZER INC-2017393942

PATIENT
  Age: 83 Year
  Sex: Female

DRUGS (7)
  1. TRANEXAMIC ACID. [Suspect]
     Active Substance: TRANEXAMIC ACID
     Dosage: 2 G, UNK
  2. HEPARIN-RATIOPHARM [Suspect]
     Active Substance: HEPARIN SODIUM
     Dosage: UNK
  3. NOREPINEPHRINE. [Concomitant]
     Active Substance: NOREPINEPHRINE
     Dosage: AFTER 9H 1.0 UG/KG/MIN
  4. NOREPINEPHRINE. [Concomitant]
     Active Substance: NOREPINEPHRINE
     Dosage: AFTER 4H POST-OP 0.9 UG/KG/MIN
  5. HEPARIN-RATIOPHARM [Suspect]
     Active Substance: HEPARIN SODIUM
     Dosage: UNK
  6. HEPARIN-RATIOPHARM [Suspect]
     Active Substance: HEPARIN SODIUM
     Dosage: UNK
  7. HEPARIN-RATIOPHARM [Suspect]
     Active Substance: HEPARIN SODIUM
     Dosage: 45000 IU, UNK
     Route: 042

REACTIONS (3)
  - Drug ineffective [Unknown]
  - Hepatic failure [Unknown]
  - Renal failure [Unknown]

NARRATIVE: CASE EVENT DATE: 20170811
